FAERS Safety Report 26187346 (Version 1)
Quarter: 2025Q4

REPORT INFORMATION
  Report Type: Spontaneous
  Country: US (occurrence: US)
  Receive Date: 20251222
  Receipt Date: 20251222
  Transmission Date: 20260117
  Serious: Yes (Other)
  Sender: VERTEX
  Company Number: US-VERTEX PHARMACEUTICALS-2025-021637

PATIENT
  Age: 7 Year
  Sex: Male

DRUGS (1)
  1. TRIKAFTA [Suspect]
     Active Substance: ELEXACAFTOR\IVACAFTOR\TEZACAFTOR
     Indication: Cystic fibrosis
     Dosage: UNKNOWN DOSAGE REGIMEN
     Route: 061

REACTIONS (5)
  - Suicidal ideation [Unknown]
  - Anxiety [Unknown]
  - Brain fog [Unknown]
  - Pulmonary function test decreased [Not Recovered/Not Resolved]
  - Weight decreased [Not Recovered/Not Resolved]
